FAERS Safety Report 5000587-4 (Version None)
Quarter: 2006Q2

REPORT INFORMATION
  Report Type: 
  Country: None (occurrence: None)
  Receive Date: 20060512
  Receipt Date: 20060503
  Transmission Date: 20061013
  Serious: Yes (Hospitalization)
  Sender: FDA-Public Use
  Company Number: US-JNJFOC-20060501011

PATIENT
  Sex: Male

DRUGS (6)
  1. NIZORAL [Suspect]
     Indication: NEOPLASM MALIGNANT
     Route: 048
  2. VINFLUNINE [Suspect]
     Route: 042
  3. VINFLUNINE [Suspect]
     Indication: NEOPLASM MALIGNANT
     Route: 042
  4. DIOVAN [Concomitant]
  5. DURAGESIC-100 [Concomitant]
  6. AMBIEN [Concomitant]

REACTIONS (8)
  - GASTRITIS [None]
  - ILEUS [None]
  - MALIGNANT HYPERTENSION [None]
  - NEUTROPENIA [None]
  - SEPTIC SHOCK [None]
  - SYNCOPE [None]
  - THROMBOCYTOPENIA [None]
  - UROSEPSIS [None]
